FAERS Safety Report 7350025-1 (Version None)
Quarter: 2011Q1

REPORT INFORMATION
  Report Type: 
  Country: None (occurrence: None)
  Receive Date: 20110314
  Receipt Date: 20110309
  Transmission Date: 20110831
  Serious: Yes (Hospitalization)
  Sender: FDA-Public Use
  Company Number: CO-ROCHE-764504

PATIENT
  Sex: Male

DRUGS (4)
  1. MIRCERA [Suspect]
     Route: 058
     Dates: start: 20110215
  2. PREDNISOLONE [Concomitant]
     Route: 048
  3. AMLODIPINO [Concomitant]
     Indication: HYPERTENSION
     Dosage: FREQUENCY: QD
     Route: 048
  4. ENALAPRIL MALEATE [Concomitant]
     Indication: HYPERTENSION
     Route: 048

REACTIONS (1)
  - CHEST PAIN [None]
